FAERS Safety Report 15418215 (Version 2)
Quarter: 2018Q4

REPORT INFORMATION
  Report Type: Spontaneous
  Country: US (occurrence: US)
  Receive Date: 20180924
  Receipt Date: 20181023
  Transmission Date: 20190204
  Serious: Yes (Hospitalization, Other)
  Sender: FDA-Public Use
  Company Number: US-OTSUKA-2018_015988

PATIENT
  Sex: Male

DRUGS (24)
  1. ABILIFY [Suspect]
     Active Substance: ARIPIPRAZOLE
     Indication: MAJOR DEPRESSION
     Dosage: UNK, BID (ONE HALF TABLET)
     Route: 048
     Dates: start: 20101213
  2. BUPROPION HCL [Concomitant]
     Active Substance: BUPROPION HYDROCHLORIDE
     Indication: AFFECTIVE DISORDER
     Dosage: 1 DF, QD
     Route: 048
  3. ABILIFY [Suspect]
     Active Substance: ARIPIPRAZOLE
     Indication: AFFECTIVE DISORDER
     Dosage: UNK, QD (ONE HALF TABLET OF 10MG)
     Route: 048
     Dates: start: 20100426
  4. GABAPENTIN. [Concomitant]
     Active Substance: GABAPENTIN
     Indication: NEURALGIA
     Dosage: UNK, TIW (THREE TIMES A DAY AS NEEDED)
     Route: 048
     Dates: start: 20040218
  5. CITALOPRAM [Concomitant]
     Active Substance: CITALOPRAM HYDROBROMIDE
     Indication: AFFECTIVE DISORDER
     Dosage: 40 MG, QD
     Route: 048
  6. CITALOPRAM [Concomitant]
     Active Substance: CITALOPRAM HYDROBROMIDE
     Dosage: 1 DF, QD
     Route: 048
  7. TRAZODONE [Concomitant]
     Active Substance: TRAZODONE HYDROCHLORIDE
     Indication: AFFECTIVE DISORDER
     Dosage: UNK(THREE TABLETS BY MOUTH AT BEDTIME)
     Route: 048
  8. TRAZODONE [Concomitant]
     Active Substance: TRAZODONE HYDROCHLORIDE
     Indication: SLEEP DISORDER
  9. IBUPROFEN. [Concomitant]
     Active Substance: IBUPROFEN
     Indication: PRODUCT USED FOR UNKNOWN INDICATION
     Dosage: 1 DF, TIW
     Route: 048
  10. RANITIDINE. [Concomitant]
     Active Substance: RANITIDINE
     Indication: GASTROOESOPHAGEAL REFLUX DISEASE
     Dosage: 1 DF, BID
     Route: 048
  11. POTASSIUM CHLORIDE. [Concomitant]
     Active Substance: POTASSIUM CHLORIDE
     Indication: MINERAL SUPPLEMENTATION
     Dosage: 1 DF, BID
     Route: 048
  12. ABILIFY [Suspect]
     Active Substance: ARIPIPRAZOLE
     Dosage: 10 MG, QD
     Route: 048
     Dates: start: 20140126
  13. AMOXICILLIN. [Concomitant]
     Active Substance: AMOXICILLIN
     Indication: PRODUCT USED FOR UNKNOWN INDICATION
     Dosage: UNK, BID
     Route: 048
     Dates: start: 20000614
  14. EFFEXOR [Concomitant]
     Active Substance: VENLAFAXINE HYDROCHLORIDE
     Indication: PRODUCT USED FOR UNKNOWN INDICATION
     Dosage: 150 MG, BID
     Route: 065
  15. ALBUTEROL. [Concomitant]
     Active Substance: ALBUTEROL
     Indication: DYSPNOEA
     Dosage: INHALE 2 PUFFS BY MOUTH EVERY 6 HOURS AS NEEDED
     Route: 055
  16. BUDESONIDE. [Concomitant]
     Active Substance: BUDESONIDE
     Indication: DYSPNOEA
     Dosage: UNK
     Route: 055
  17. OXYCODONE [Concomitant]
     Active Substance: OXYCODONE
     Indication: BACK PAIN
     Dosage: UNK
     Route: 048
     Dates: start: 20080505
  18. ZANTAC [Concomitant]
     Active Substance: RANITIDINE HYDROCHLORIDE
     Indication: GASTROOESOPHAGEAL REFLUX DISEASE
     Dosage: 1 DF, BID
     Route: 048
  19. ARIPIPRAZOLE. [Suspect]
     Active Substance: ARIPIPRAZOLE
     Indication: PRODUCT USED FOR UNKNOWN INDICATION
     Dosage: UNK
     Route: 065
     Dates: start: 20150420, end: 20161106
  20. RISPERIDONE. [Concomitant]
     Active Substance: RISPERIDONE
     Indication: AFFECTIVE DISORDER
     Dosage: 1 DF, QD
     Route: 048
  21. METHOCARBAMOL. [Concomitant]
     Active Substance: METHOCARBAMOL
     Indication: MUSCLE SPASMS
     Dosage: ONE TO TWO TABLETS BY MOUTH EVERY 6-8 HOURS
     Route: 048
     Dates: start: 20020620
  22. TRAMADOL. [Concomitant]
     Active Substance: TRAMADOL
     Indication: PAIN
     Dosage: 1 DF, Q4HR
     Route: 048
  23. HYDROCHLOROTHIAZIDE. [Concomitant]
     Active Substance: HYDROCHLOROTHIAZIDE
     Indication: PRODUCT USED FOR UNKNOWN INDICATION
     Dosage: UNK
     Route: 065
     Dates: start: 20080530
  24. VENLAFAXINE [Concomitant]
     Active Substance: VENLAFAXINE HYDROCHLORIDE
     Indication: AFFECTIVE DISORDER
     Dosage: UNK, QD (EVERY MORNING)
     Route: 048
     Dates: start: 20070807

REACTIONS (45)
  - Onychomycosis [Unknown]
  - Mean cell haemoglobin increased [Unknown]
  - Exostosis [Unknown]
  - Dysphoria [Unknown]
  - Insomnia [Unknown]
  - Nausea [Unknown]
  - Tooth deposit [Unknown]
  - Cellulitis [Unknown]
  - Chronic obstructive pulmonary disease [Unknown]
  - Mean cell volume increased [Unknown]
  - Hypoaesthesia [Unknown]
  - Back pain [Unknown]
  - Cough [Unknown]
  - Suicidal ideation [Unknown]
  - Astigmatism [Unknown]
  - Injury [Unknown]
  - Neuropsychiatric symptoms [Unknown]
  - Emotional distress [Unknown]
  - Gait disturbance [Unknown]
  - Hyperglycaemia [Unknown]
  - Meibomian gland dysfunction [Unknown]
  - Skin disorder [Unknown]
  - Weight decreased [Unknown]
  - Hospitalisation [Unknown]
  - Presbyopia [Unknown]
  - Blood potassium decreased [Unknown]
  - Basophil count increased [Unknown]
  - Pain in extremity [Unknown]
  - Blood creatinine increased [Unknown]
  - Gambling disorder [Not Recovered/Not Resolved]
  - Economic problem [Unknown]
  - Chest pain [Unknown]
  - Flatulence [Unknown]
  - Haematochezia [Unknown]
  - Limb injury [Unknown]
  - Lymphocyte count increased [Unknown]
  - Myopia [Unknown]
  - Ligament sprain [Unknown]
  - Blister [Not Recovered/Not Resolved]
  - Product use in unapproved indication [Unknown]
  - Adjustment disorder [Unknown]
  - Large intestine benign neoplasm [Unknown]
  - Tinea pedis [Unknown]
  - Monocyte count increased [Unknown]
  - Hyperkeratosis [Unknown]

NARRATIVE: CASE EVENT DATE: 20100426
